FAERS Safety Report 23883720 (Version 1)
Quarter: 2024Q2

REPORT INFORMATION
  Report Type: Spontaneous
  Country: PL (occurrence: PL)
  Receive Date: 20240522
  Receipt Date: 20240522
  Transmission Date: 20240715
  Serious: Yes (Other)
  Sender: FDA-Public Use
  Company Number: None

PATIENT
  Age: 73 Year
  Sex: Female

DRUGS (2)
  1. LEVOFLOXACIN [Suspect]
     Active Substance: LEVOFLOXACIN
     Indication: Pneumonia
     Dosage: USED IN THE MORNING AND EVENING; THE MEDICINE WAS USED ABOUT 3 WEEKS AGO AND WAS SUPPOSED TO BE U...
     Route: 048
  2. EXFORGE HCT [Concomitant]
     Active Substance: AMLODIPINE BESYLATE\HYDROCHLOROTHIAZIDE\VALSARTAN
     Indication: Product used for unknown indication
     Dosage: THE DRUG HAS BEEN USED PERMANENTLY FOR ABOUT HALF A YEAR; ONGOING THERAPY
     Route: 048

REACTIONS (2)
  - Tendon pain [Recovering/Resolving]
  - Tendon rupture [Recovering/Resolving]
